FAERS Safety Report 7955575-2 (Version None)
Quarter: 2011Q4

REPORT INFORMATION
  Report Type: 
  Country: None (occurrence: None)
  Receive Date: 20111202
  Receipt Date: 20111128
  Transmission Date: 20120403
  Serious: Yes (Life-Threatening)
  Sender: FDA-Public Use
  Company Number: JP-ASTRAZENECA-2011SE72026

PATIENT
  Age: 72 Year
  Sex: Male

DRUGS (8)
  1. AMLODIPINE [Concomitant]
     Route: 048
  2. TEGRETOL [Concomitant]
     Route: 065
  3. OLMESARTAN MEDOXOMIL [Concomitant]
     Route: 048
  4. FAMOTIDINE [Concomitant]
     Route: 048
  5. CRESTOR [Suspect]
     Indication: HYPERCHOLESTEROLAEMIA
     Route: 048
     Dates: start: 20111104, end: 20111112
  6. SPIRIVA [Concomitant]
     Route: 055
  7. MAGMITT [Concomitant]
     Route: 065
  8. UNKNOWNDRUG [Concomitant]
     Route: 048

REACTIONS (1)
  - STEVENS-JOHNSON SYNDROME [None]
